FAERS Safety Report 8774038 (Version 2)
Quarter: 2012Q4

REPORT INFORMATION
  Report Type: Report from Study
  Country: DE (occurrence: DE)
  Receive Date: 20120907
  Receipt Date: 20120928
  Transmission Date: 20130627
  Serious: Yes (Hospitalization)
  Sender: FDA-Public Use
  Company Number: DE-AMGEN-DEUCT2012056175

PATIENT
  Age: 63 Year
  Sex: Male
  Weight: 80 kg

DRUGS (10)
  1. ETANERCEPT [Suspect]
     Indication: RHEUMATOID ARTHRITIS
     Dosage: 50 mg, 1x weekly
     Route: 058
     Dates: start: 20120119, end: 201208
  2. METHOTREXAT                        /00113801/ [Concomitant]
     Indication: RHEUMATOID ARTHRITIS
     Dosage: 15 mg, 1x weekly
     Route: 058
     Dates: start: 201104
  3. FOLIC ACID [Concomitant]
     Indication: RHEUMATOID ARTHRITIS
     Dosage: 5 mg, 1x weekly
     Route: 048
     Dates: start: 201104
  4. CALCIUM D3 STADA [Concomitant]
     Indication: RHEUMATOID ARTHRITIS
     Dosage: 500 mg, 2x/day
     Route: 048
     Dates: start: 201104
  5. PREDNISOLONE [Concomitant]
     Indication: RHEUMATOID ARTHRITIS
     Dosage: 5 mg, 1x/day
     Route: 048
     Dates: start: 201104
  6. ASS [Concomitant]
     Indication: CORONARY ARTERY DISEASE
     Dosage: 100 mg, daily, since years
  7. BISOPROLOL [Concomitant]
     Indication: HYPERTENSION
     Dosage: 2.5 mg/day, since years
  8. RAMIPRIL [Concomitant]
     Dosage: 5 mg/day, since years
  9. FALITHROM [Concomitant]
     Indication: ATRIAL FIBRILLATION
     Dosage: according to Quick, since years
  10. ALLOPURINOL [Concomitant]
     Indication: HYPERURICAEMIA
     Dosage: 150 mg/day, since years

REACTIONS (2)
  - Oropharyngeal cancer [Recovered/Resolved]
  - Hypopharyngeal cancer [Recovered/Resolved]
